FAERS Safety Report 9669925 (Version 1)
Quarter: 2013Q4

REPORT INFORMATION
  Report Type: Spontaneous
  Country: US (occurrence: None)
  Receive Date: 20131104
  Receipt Date: 20131104
  Transmission Date: 20140711
  Serious: Yes (Hospitalization)
  Sender: FDA-Public Use
  Company Number: SYM-2013-12275

PATIENT
  Age: 6 Year
  Sex: Female

DRUGS (1)
  1. XENAZINE [Suspect]
     Indication: CHOREA
     Dosage: 4-5 TABLETS THREE TIMES A DAY , ORAL
     Route: 048
     Dates: start: 20130801

REACTIONS (1)
  - Investigation [None]
